FAERS Safety Report 7497750-X (Version None)
Quarter: 2011Q2

REPORT INFORMATION
  Report Type: 
  Country: None (occurrence: None)
  Receive Date: 20110523
  Receipt Date: 20110513
  Transmission Date: 20111010
  Serious: Yes (Hospitalization, Other)
  Sender: FDA-Public Use
  Company Number: US-AMGEN-USASP2011024985

PATIENT
  Age: 42 Year
  Sex: Female

DRUGS (1)
  1. ENBREL [Suspect]
     Indication: PSORIASIS
     Dosage: 50 MG, QWK
     Dates: start: 20060816

REACTIONS (7)
  - NEPHROLITHIASIS [None]
  - MYOCARDIAL INFARCTION [None]
  - PERICARDITIS [None]
  - CHEST PAIN [None]
  - CARDIAC DISORDER [None]
  - ATRIOVENTRICULAR BLOCK COMPLETE [None]
  - GLYCOSYLATED HAEMOGLOBIN INCREASED [None]
